FAERS Safety Report 6613386-4 (Version None)
Quarter: 2010Q1

REPORT INFORMATION
  Report Type: 
  Country: None (occurrence: None)
  Receive Date: 20100304
  Receipt Date: 20100223
  Transmission Date: 20100710
  Serious: Yes (Hospitalization)
  Sender: FDA-Public Use
  Company Number: US-ASTRAZENECA-2010SE07813

PATIENT
  Age: 77 Year
  Sex: Male
  Weight: 101.2 kg

DRUGS (7)
  1. TOPROL-XL [Suspect]
     Indication: ATRIAL FIBRILLATION
     Route: 048
     Dates: start: 20020101
  2. TOPROL-XL [Suspect]
     Route: 048
  3. TOPROL-XL [Suspect]
     Route: 048
     Dates: start: 20090101
  4. TOPROL-XL [Suspect]
     Route: 048
     Dates: start: 20100101
  5. ASPIRIN [Concomitant]
  6. LANOXIN [Concomitant]
  7. LOTREL [Concomitant]

REACTIONS (3)
  - DEAFNESS [None]
  - NEUROPATHY PERIPHERAL [None]
  - STENT PLACEMENT [None]
